FAERS Safety Report 24353055 (Version 1)
Quarter: 2024Q3

REPORT INFORMATION
  Report Type: Report from Study
  Country: IT (occurrence: IT)
  Receive Date: 20240923
  Receipt Date: 20240923
  Transmission Date: 20241017
  Serious: No
  Sender: ROCHE
  Company Number: IT-ROCHE-3470192

PATIENT
  Age: 62 Year
  Sex: Female
  Weight: 70.0 kg

DRUGS (18)
  1. HERCEPTIN [Suspect]
     Active Substance: TRASTUZUMAB
     Indication: HER2 positive breast cancer
     Dosage: MOST RECENT DOSE ADMINISTERED ON: 13/SEP/2017? FREQUENCY TEXT:OTHER
     Route: 042
     Dates: start: 20170606, end: 20170606
  2. HERCEPTIN [Suspect]
     Active Substance: TRASTUZUMAB
     Dosage: MOST RECENT DOSE OF TRASTUZUMAB: 13/SEP/2017
     Route: 042
     Dates: start: 20170913
  3. ELLENCE [Suspect]
     Active Substance: EPIRUBICIN HYDROCHLORIDE
     Indication: HER2 positive breast cancer
     Dosage: MOST RECENT DOSE ADMINISTERED ON: 12/MAY/2017
     Route: 042
     Dates: start: 20170307, end: 20170512
  4. ELLENCE [Suspect]
     Active Substance: EPIRUBICIN HYDROCHLORIDE
     Dosage: MOST RECENT DOSE OF EPIRUBICIN: 12/MAY/2017
     Route: 065
     Dates: start: 20170512
  5. TYKERB [Suspect]
     Active Substance: LAPATINIB DITOSYLATE
     Indication: HER2 positive breast cancer
     Dosage: MOST RECENT DOSE OF LAPATINIB: 13/DEC/2018 (1000 MG)
     Route: 048
     Dates: start: 20181213, end: 20190207
  6. TYKERB [Suspect]
     Active Substance: LAPATINIB DITOSYLATE
     Route: 048
     Dates: start: 20190320
  7. TAXOL [Suspect]
     Active Substance: PACLITAXEL
     Indication: HER2 positive breast cancer
     Dosage: MOST RECENT DOSE OF PACLITAXEL: 30/AUG/2017
     Route: 042
     Dates: start: 20170606, end: 20170830
  8. TAXOL [Suspect]
     Active Substance: PACLITAXEL
     Dosage: MOST RECENT DOSE OF PACLITAXEL: 30/AUG/2017
     Route: 065
     Dates: start: 20170830
  9. XELODA [Suspect]
     Active Substance: CAPECITABINE
     Indication: HER2 positive breast cancer
     Dosage: MOST RECENT DOSE OF CAPECITABINE: 07/FEB/2019? FREQUENCY TEXT:OTHER
     Route: 048
     Dates: start: 20181213, end: 20190207
  10. XELODA [Suspect]
     Active Substance: CAPECITABINE
     Route: 048
     Dates: start: 20190320
  11. CYTOXAN [Suspect]
     Active Substance: CYCLOPHOSPHAMIDE
     Indication: HER2 positive breast cancer
     Dosage: MOST RECENT DOSE OF CYCLOPHOSPHAMIDE: 12/MAY/2017
     Route: 042
     Dates: start: 20170307, end: 20170512
  12. CYTOXAN [Suspect]
     Active Substance: CYCLOPHOSPHAMIDE
     Dosage: MOST RECENT DOSE OF CYCLOPHOSPHAMIDE: 12/MAY/2017
     Route: 065
     Dates: start: 20170512
  13. LEVOTHYROXINE SODIUM [Concomitant]
     Active Substance: LEVOTHYROXINE SODIUM
     Dosage: ONGOING = NOT CHECKED
     Dates: start: 20000615
  14. RAMIPRIL [Concomitant]
     Active Substance: RAMIPRIL
     Dosage: ONGOING = NOT CHECKED
     Dates: start: 20000615, end: 20190715
  15. PANTOPRAZOLE SODIUM [Concomitant]
     Active Substance: PANTOPRAZOLE SODIUM
     Dosage: ONGOING = CHECKED
     Dates: start: 20190212
  16. DEXAMETHASONE [Concomitant]
     Active Substance: DEXAMETHASONE
     Dosage: ONGOING = NOT CHECKED
     Dates: start: 20181124, end: 20190206
  17. DEXAMETHASONE [Concomitant]
     Active Substance: DEXAMETHASONE
     Dates: start: 20190207
  18. LANSOPRAZOLE [Concomitant]
     Active Substance: LANSOPRAZOLE
     Dosage: ONGOING = NOT CHECKED
     Dates: start: 20190715, end: 20190715

REACTIONS (2)
  - Platelet count decreased [Recovered/Resolved]
  - Stomatitis [Recovered/Resolved]

NARRATIVE: CASE EVENT DATE: 20190207
